FAERS Safety Report 12140790 (Version 4)
Quarter: 2016Q3

REPORT INFORMATION
  Report Type: Spontaneous
  Country: ES (occurrence: ES)
  Receive Date: 20160303
  Receipt Date: 20160707
  Transmission Date: 20161109
  Serious: Yes (Other)
  Sender: FDA-Public Use
  Company Number: ES-JNJFOC-20160227215

PATIENT
  Age: 33 Year
  Sex: Male

DRUGS (5)
  1. PREZISTA [Suspect]
     Active Substance: DARUNAVIR ETHANOLATE
     Indication: HIV INFECTION
     Route: 065
     Dates: start: 20140701
  2. TRUVADA [Suspect]
     Active Substance: EMTRICITABINE\TENOFOVIR DISOPROXIL FUMARATE
     Indication: HIV INFECTION
     Route: 065
     Dates: start: 20140701
  3. OMEPRAZOLE. [Concomitant]
     Active Substance: OMEPRAZOLE
     Route: 065
  4. NORVIR [Suspect]
     Active Substance: RITONAVIR
     Indication: HIV INFECTION
     Route: 065
     Dates: start: 20140701
  5. RANITIDINE. [Concomitant]
     Active Substance: RANITIDINE
     Route: 065

REACTIONS (4)
  - Chronic gastritis [Recovering/Resolving]
  - Barrett^s oesophagus [Not Recovered/Not Resolved]
  - Oesophagitis [Not Recovered/Not Resolved]
  - Hiatus hernia [Not Recovered/Not Resolved]

NARRATIVE: CASE EVENT DATE: 201409
